FAERS Safety Report 25362148 (Version 1)
Quarter: 2025Q2

REPORT INFORMATION
  Report Type: Spontaneous
  Country: DE (occurrence: DE)
  Receive Date: 20250527
  Receipt Date: 20250527
  Transmission Date: 20250717
  Serious: Yes (Other)
  Sender: CELLTRION
  Company Number: DE-ABBVIE-6013581

PATIENT

DRUGS (2)
  1. ADALIMUMAB [Suspect]
     Active Substance: ADALIMUMAB
     Indication: Product used for unknown indication
     Route: 058
     Dates: start: 2012
  2. RINVOQ [Suspect]
     Active Substance: UPADACITINIB
     Indication: Product used for unknown indication
     Route: 048
     Dates: start: 202402

REACTIONS (6)
  - Hyperemesis gravidarum [Unknown]
  - Juvenile idiopathic arthritis [Unknown]
  - Uveitis [Unknown]
  - Uveitis [Recovered/Resolved]
  - Arthropathy [Unknown]
  - Arthritis [Unknown]

NARRATIVE: CASE EVENT DATE: 20140101
